FAERS Safety Report 24271783 (Version 1)
Quarter: 2024Q3

REPORT INFORMATION
  Report Type: Other
  Country: PT (occurrence: PT)
  Receive Date: 20240902
  Receipt Date: 20240902
  Transmission Date: 20241016
  Serious: Yes (Death, Hospitalization)
  Sender: BIONPHARMA
  Company Number: PT-Bion-013744

PATIENT
  Age: 94 Year
  Sex: Female

DRUGS (2)
  1. IBUPROFEN [Suspect]
     Active Substance: IBUPROFEN
     Indication: Central pain syndrome
     Dosage: 400MG
  2. ACETAMINOPHEN [Concomitant]
     Active Substance: ACETAMINOPHEN
     Indication: Central pain syndrome
     Dosage: 1000MG

REACTIONS (1)
  - Drug ineffective [Fatal]
